FAERS Safety Report 4832652-6 (Version None)
Quarter: 2005Q4

REPORT INFORMATION
  Report Type: 
  Country: None (occurrence: None)
  Receive Date: 20051117
  Receipt Date: 20051108
  Transmission Date: 20060501
  Serious: Yes (Other)
  Sender: FDA-Public Use
  Company Number: 2005-08-2251

PATIENT
  Age: 55 Year
  Sex: Female
  Weight: 61.6892 kg

DRUGS (8)
  1. NASONEX [Suspect]
     Indication: INFLAMMATION
     Dosage: 1-2 SPR/ NARE NASAL SPRAY
     Route: 045
     Dates: start: 20050712, end: 20050727
  2. NASONEX [Suspect]
     Indication: OEDEMA MUCOSAL
     Dosage: 1-2 SPR/ NARE NASAL SPRAY
     Route: 045
     Dates: start: 20050712, end: 20050727
  3. ADVAIR DISKUS 100/50 [Suspect]
     Indication: UPPER RESPIRATORY TRACT INFECTION
     Dosage: 250 / 50 BID INHALATION
     Route: 055
     Dates: start: 20050712
  4. ALBUTEROL [Concomitant]
  5. CELEBREX [Concomitant]
  6. METHOTREXATE [Concomitant]
  7. ELIDEL [Concomitant]
  8. CIPRO [Concomitant]

REACTIONS (3)
  - AGEUSIA [None]
  - ANOSMIA [None]
  - SINUS DISORDER [None]
